FAERS Safety Report 6707890-8 (Version None)
Quarter: 2010Q2

REPORT INFORMATION
  Report Type: 
  Country: None (occurrence: None)
  Receive Date: 20100503
  Receipt Date: 20090615
  Transmission Date: 20101027
  Serious: No
  Sender: FDA-Public Use
  Company Number: US-ASTRAZENECA-2009UW15232

PATIENT
  Age: 751 Month
  Sex: Female
  Weight: 59 kg

DRUGS (10)
  1. NEXIUM [Suspect]
     Route: 048
     Dates: start: 20060101
  2. TOPROL-XL [Concomitant]
  3. ZYRTEC [Concomitant]
  4. ASPIRIN [Concomitant]
  5. NATURAL HORMONE [Concomitant]
  6. NORVASC [Concomitant]
  7. ZOCOR [Concomitant]
  8. BONIVA [Concomitant]
  9. CALCIUM [Concomitant]
  10. VITAMINS [Concomitant]

REACTIONS (1)
  - ILL-DEFINED DISORDER [None]
